FAERS Safety Report 10535482 (Version 3)
Quarter: 2014Q4

REPORT INFORMATION
  Report Type: Report from Study
  Country: US (occurrence: US)
  Receive Date: 20141022
  Receipt Date: 20141201
  Transmission Date: 20150529
  Serious: Yes (Other)
  Sender: FDA-Public Use
  Company Number: US-BAYER-2014-143536

PATIENT
  Age: 70 Year
  Sex: Female

DRUGS (4)
  1. STIVARGA [Suspect]
     Active Substance: REGORAFENIB
     Indication: COLORECTAL CANCER STAGE IV
     Dosage: 140 MG DAILY
     Route: 048
     Dates: start: 20140909, end: 20140922
  2. STIVARGA [Suspect]
     Active Substance: REGORAFENIB
     Indication: COLORECTAL CANCER STAGE IV
     Dosage: 80 MG, DAILY
     Route: 048
     Dates: start: 20141017, end: 20141024
  3. STIVARGA [Suspect]
     Active Substance: REGORAFENIB
     Indication: COLORECTAL CANCER STAGE IV
     Dosage: 80MG TWICE DAILY
     Route: 048
     Dates: start: 20141013
  4. STIVARGA [Suspect]
     Active Substance: REGORAFENIB
     Indication: METASTASES TO LIVER
     Dosage: 120MG DAILY
     Route: 048
     Dates: start: 20140924, end: 20140930

REACTIONS (8)
  - Fatigue [None]
  - Asthenia [Recovering/Resolving]
  - Abasia [Recovering/Resolving]
  - Weight decreased [None]
  - Decreased appetite [None]
  - Dysphonia [None]
  - Feeding disorder [None]
  - Asthenia [None]

NARRATIVE: CASE EVENT DATE: 20140909
